FAERS Safety Report 9730818 (Version 1)
Quarter: 2013Q4

REPORT INFORMATION
  Report Type: Report from Study
  Country: US (occurrence: US)
  Receive Date: 20131205
  Receipt Date: 20131205
  Transmission Date: 20140711
  Serious: Yes (Other)
  Sender: FDA-Public Use
  Company Number: US-ROCHE-1309654

PATIENT
  Sex: Male
  Weight: 28.9 kg

DRUGS (5)
  1. CELLCEPT [Suspect]
     Indication: PRODUCT USED FOR UNKNOWN INDICATION
     Route: 065
  2. TACROLIMUS [Concomitant]
     Route: 065
  3. PREDNISONE [Concomitant]
     Route: 065
  4. CONCERTA [Concomitant]
     Route: 065
  5. AMLODIPINE [Concomitant]
     Route: 065

REACTIONS (3)
  - Renal transplant [Unknown]
  - Weight decreased [Unknown]
  - Hydrocephalus [Unknown]
